FAERS Safety Report 14393723 (Version 1)
Quarter: 2018Q1

REPORT INFORMATION
  Report Type: Spontaneous
  Country: CN (occurrence: CN)
  Receive Date: 20180116
  Receipt Date: 20180116
  Transmission Date: 20180509
  Serious: Yes (Hospitalization)
  Sender: FDA-Public Use
  Company Number: PHHY2018CN004537

PATIENT
  Age: 35 Year
  Sex: Female

DRUGS (2)
  1. LETROZOLE. [Suspect]
     Active Substance: LETROZOLE
     Indication: POLYCYSTIC OVARIES
     Route: 065
  2. HUMAN MENOPAUSAL GONADOTROPHIN [Suspect]
     Active Substance: GONADOTROPHIN, CHORIONIC
     Indication: POLYCYSTIC OVARIES
     Route: 065

REACTIONS (8)
  - Ovarian hyperstimulation syndrome [Unknown]
  - Tooth injury [Unknown]
  - Product use in unapproved indication [Unknown]
  - Decreased appetite [Unknown]
  - Tongue erythema [Unknown]
  - Hair colour changes [Unknown]
  - Oliguria [Unknown]
  - Abdominal distension [Recovering/Resolving]

NARRATIVE: CASE EVENT DATE: 20160326
